FAERS Safety Report 23347834 (Version 1)
Quarter: 2023Q4

REPORT INFORMATION
  Report Type: Spontaneous
  Country: US (occurrence: None)
  Receive Date: 20231228
  Receipt Date: 20231228
  Transmission Date: 20240109
  Serious: Yes (Hospitalization)
  Sender: FDA-Public Use
  Company Number: None

PATIENT
  Age: 79 Year
  Sex: Male

DRUGS (2)
  1. GAMMAGARD LIQUID [Suspect]
     Active Substance: HUMAN IMMUNOGLOBULIN G
     Indication: Myasthenia gravis
     Dosage: INFUSE 35 GM (350ML) INTRAVENOUSLY DAILY FOR 3 DAYS (CONSECUTIVELY OR NON-CONSECUTIVELY) EVERY 3 WEE
     Route: 042
     Dates: start: 202206
  2. SODIUM CHLOR SOLN [Concomitant]

REACTIONS (1)
  - Pneumonia [None]

NARRATIVE: CASE EVENT DATE: 20231204
